FAERS Safety Report 6777985-1 (Version None)
Quarter: 2010Q2

REPORT INFORMATION
  Report Type: 
  Country: None (occurrence: None)
  Receive Date: 20100618
  Receipt Date: 20100608
  Transmission Date: 20101027
  Serious: No
  Sender: FDA-Public Use
  Company Number: US-BIOGENIDEC-2010BI019123

PATIENT
  Age: 45 Year
  Sex: Female

DRUGS (3)
  1. TYSABRI [Suspect]
     Indication: MULTIPLE SCLEROSIS
     Route: 042
     Dates: start: 20070828, end: 20080828
  2. TYSABRI [Suspect]
     Route: 042
     Dates: start: 20070801, end: 20090427
  3. TYSABRI [Suspect]
     Route: 042
     Dates: start: 20100224

REACTIONS (1)
  - GAIT DISTURBANCE [None]
